FAERS Safety Report 24979023 (Version 1)
Quarter: 2025Q1

REPORT INFORMATION
  Report Type: Report from Study
  Country: US (occurrence: None)
  Receive Date: 20250218
  Receipt Date: 20250218
  Transmission Date: 20250409
  Serious: Yes (Hospitalization, Other)
  Sender: ALEXION PHARMACEUTICALS
  Company Number: US-AstraZeneca-2013SE01913

PATIENT
  Age: 57 Year

DRUGS (9)
  1. NEXIUM [Suspect]
     Active Substance: ESOMEPRAZOLE MAGNESIUM
  2. LISINOPRIL [Suspect]
     Active Substance: LISINOPRIL
  3. METOPROLOL TARTRATE [Concomitant]
     Active Substance: METOPROLOL TARTRATE
  4. ASPIRIN [Concomitant]
     Active Substance: ASPIRIN
  5. AMITRIPTYLINE [Concomitant]
     Active Substance: AMITRIPTYLINE
  6. CYCLOBENZAPRINE [Concomitant]
     Active Substance: CYCLOBENZAPRINE
  7. DILANTIN [Concomitant]
     Active Substance: PHENYTOIN
  8. VITAMINS [Concomitant]
     Active Substance: VITAMINS
  9. TRAMADOL [Concomitant]
     Active Substance: TRAMADOL

REACTIONS (17)
  - Anaemia [Unknown]
  - Dizziness [Unknown]
  - Syncope [Unknown]
  - Hypertension [Unknown]
  - Seizure [Unknown]
  - Ulcer [Unknown]
  - Gastrointestinal haemorrhage [Unknown]
  - Blood pressure decreased [Unknown]
  - Abdominal pain upper [Unknown]
  - Faeces discoloured [Unknown]
  - Oral discomfort [Unknown]
  - Visual impairment [Unknown]
  - Hypoacusis [Unknown]
  - Gastritis [Unknown]
  - Hepatitis C [Unknown]
  - Malaise [Unknown]
  - Product dose omission issue [Unknown]
